FAERS Safety Report 25371352 (Version 1)
Quarter: 2025Q2

REPORT INFORMATION
  Report Type: Report from Study
  Country: CA (occurrence: CA)
  Receive Date: 20250529
  Receipt Date: 20250529
  Transmission Date: 20250716
  Serious: Yes (Other)
  Sender: ABBVIE
  Company Number: CA-ABBVIE-6301773

PATIENT
  Age: 39 Year
  Sex: Female

DRUGS (2)
  1. RINVOQ [Suspect]
     Active Substance: UPADACITINIB
     Indication: Crohn^s disease
     Dosage: DOSE REDUCED
  2. RINVOQ [Suspect]
     Active Substance: UPADACITINIB
     Indication: Crohn^s disease
     Dosage: 1 TABLET (45MG) ONCE DAILY FOR 12 WEEKS?FORM STRENGTH:45 MG
     Route: 048

REACTIONS (3)
  - Ileostomy [Unknown]
  - Intestinal perforation [Unknown]
  - Ovarian abscess [Unknown]

NARRATIVE: CASE EVENT DATE: 20250101
